FAERS Safety Report 14800330 (Version 1)
Quarter: 2018Q2

REPORT INFORMATION
  Report Type: Spontaneous
  Country: SI (occurrence: SI)
  Receive Date: 20180424
  Receipt Date: 20180424
  Transmission Date: 20180711
  Serious: Yes (Disabling)
  Sender: FDA-Public Use
  Company Number: SI-TEVA-2018-SI-884630

PATIENT
  Age: 65 Year
  Sex: Male

DRUGS (8)
  1. SPIRIVA 18 MICROGRAM [Concomitant]
     Dates: start: 2013
  2. SERETIDE 50/500 [Concomitant]
     Dosage: 50/500 MCG
     Dates: start: 2013
  3. RANEXA 375 MG [Concomitant]
     Dates: start: 2013
  4. ATORVASTATIN TEVA 40 MG [Suspect]
     Active Substance: ATORVASTATIN
     Indication: MYOCARDIAL INFARCTION
     Route: 048
  5. CONCOR COR 2.5MG [Suspect]
     Active Substance: BISOPROLOL FUMARATE
     Indication: MYOCARDIAL ISCHAEMIA
     Route: 048
  6. MAREVAN 3 MG [Suspect]
     Active Substance: WARFARIN SODIUM
     Indication: PULMONARY EMBOLISM
     Dosage: 0,5-1 TBL
     Route: 048
  7. TANYZ 0,4 MG [Suspect]
     Active Substance: TAMSULOSIN HYDROCHLORIDE
     Route: 048
     Dates: start: 20130220, end: 20180215
  8. ACIPAN 20 MG [Suspect]
     Active Substance: PANTOPRAZOLE SODIUM
     Route: 048
     Dates: start: 20130220, end: 20180215

REACTIONS (4)
  - Alopecia [Unknown]
  - Erythema multiforme [Unknown]
  - Skin atrophy [Unknown]
  - Photosensitivity reaction [Unknown]

NARRATIVE: CASE EVENT DATE: 20130220
